FAERS Safety Report 11497575 (Version 1)
Quarter: 2015Q3

REPORT INFORMATION
  Report Type: Spontaneous
  Country: SG (occurrence: SG)
  Receive Date: 20150911
  Receipt Date: 20150911
  Transmission Date: 20151125
  Serious: Yes (Hospitalization)
  Sender: FDA-Public Use
  Company Number: SG-CONCORDIA PHARMACEUTICALS INC.-CO-LA-SG-2015-039

PATIENT
  Age: 35 Year
  Sex: Female

DRUGS (1)
  1. DIGOXIN. [Suspect]
     Active Substance: DIGOXIN
     Indication: PRODUCT USED FOR UNKNOWN INDICATION
     Route: 065

REACTIONS (5)
  - Epigastric discomfort [Unknown]
  - Overdose [Recovering/Resolving]
  - Cardioactive drug level increased [Unknown]
  - Sinus bradycardia [Unknown]
  - Nausea [Unknown]
